FAERS Safety Report 12435664 (Version 1)
Quarter: 2016Q2

REPORT INFORMATION
  Report Type: Spontaneous
  Country: US (occurrence: US)
  Receive Date: 20160603
  Receipt Date: 20160603
  Transmission Date: 20160815
  Serious: No
  Sender: FDA-Public Use
  Company Number: US-ROCHE-1557008

PATIENT
  Sex: Female

DRUGS (38)
  1. CAPECITABINE. [Suspect]
     Active Substance: CAPECITABINE
     Indication: BREAST CANCER
     Route: 048
     Dates: start: 201409, end: 201502
  2. XGEVA [Suspect]
     Active Substance: DENOSUMAB
     Indication: PRODUCT USED FOR UNKNOWN INDICATION
     Route: 065
     Dates: start: 201408
  3. ATENOLOL. [Concomitant]
     Active Substance: ATENOLOL
     Route: 048
  4. ATORVASTATIN [Concomitant]
     Active Substance: ATORVASTATIN
     Dosage: IN THE EVENING
     Route: 048
  5. DALTEPARIN [Concomitant]
     Active Substance: DALTEPARIN
     Dosage: PORCINE 15000 ANTI-XA UNIT/0.6 ML
     Route: 058
  6. PEPCID [Concomitant]
     Active Substance: FAMOTIDINE
     Route: 048
  7. LORAZEPAM. [Concomitant]
     Active Substance: LORAZEPAM
     Indication: NAUSEA
     Route: 048
  8. MS CONTIN [Concomitant]
     Active Substance: MORPHINE SULFATE
     Dosage: EXTENDED RELEASE
     Route: 048
  9. METFORMIN [Concomitant]
     Active Substance: METFORMIN HYDROCHLORIDE
     Route: 048
  10. PERCOCET [Concomitant]
     Active Substance: ACETAMINOPHEN\OXYCODONE HYDROCHLORIDE
     Dosage: 5-325 MG.?TAKEN AS NEEDED (NOT EXCEEDING 10 TABLET PER ANY 24 HOUR PERIOD).
     Route: 048
  11. COMPAZINE [Concomitant]
     Active Substance: PROCHLORPERAZINE MALEATE
     Dosage: AS NEEDED.?MAX DOSE: 40 MG/ DAY
     Route: 048
  12. XGEVA [Suspect]
     Active Substance: DENOSUMAB
     Route: 065
     Dates: start: 20140731
  13. FLEXERIL [Concomitant]
     Active Substance: CYCLOBENZAPRINE HYDROCHLORIDE
     Route: 048
  14. DOCUSATE SODIUM. [Concomitant]
     Active Substance: DOCUSATE SODIUM
     Route: 048
  15. ZOFRAN ODT [Concomitant]
     Active Substance: ONDANSETRON HYDROCHLORIDE
     Indication: NAUSEA
     Dosage: TO DISSOLVE 1 TABLET IN MOUTH AND SWALLOW AS NEEDED.
     Route: 065
  16. POTASSIUM CHLORIDE SR [Concomitant]
     Dosage: ER PARTICLES/CRYSTALS.?ONLY WHEN TAKING LASIX.
     Route: 048
  17. SENNA [Concomitant]
     Active Substance: SENNA LEAF\SENNOSIDES\SENNOSIDES A AND B
     Route: 048
  18. SUMATRIPTAN. [Concomitant]
     Active Substance: SUMATRIPTAN
     Route: 048
  19. AMBIEN [Concomitant]
     Active Substance: ZOLPIDEM TARTRATE
     Dosage: AT BEDTIME
     Route: 048
  20. HYDROCORTISONE. [Concomitant]
     Active Substance: HYDROCORTISONE
     Dosage: TWO TO FOUR TIMES DAILY AS NEEDED
     Route: 061
  21. PALBOCICLIB [Concomitant]
     Active Substance: PALBOCICLIB
     Dosage: ONCE DAILY FOR 21 DAYS.?TAKEN WITH FOOD FOR 21 DAYS FOLLOWED BY 7 DAYS OFF TREATMENT FOR 28 DAY CYCL
     Route: 048
  22. POLYETHYLENE GLYCOL [Concomitant]
     Active Substance: POLYETHYLENE GLYCOLS
     Dosage: ONCE DAILY IN THE MORNING.
     Route: 048
  23. EXEMESTANE. [Suspect]
     Active Substance: EXEMESTANE
     Route: 065
     Dates: start: 201408, end: 201409
  24. EXEMESTANE. [Suspect]
     Active Substance: EXEMESTANE
     Route: 065
     Dates: start: 201502
  25. ENOXAPARIN [Concomitant]
     Active Substance: ENOXAPARIN
     Route: 065
     Dates: start: 201410
  26. FLUOCINONIDE. [Concomitant]
     Active Substance: FLUOCINONIDE
     Route: 061
  27. GLIPIZIDE ER [Concomitant]
     Active Substance: GLIPIZIDE
     Dosage: EXTENDED RELEASE 24 HOURS
     Route: 048
  28. ZOFRAN ODT [Concomitant]
     Active Substance: ONDANSETRON HYDROCHLORIDE
     Indication: VOMITING
  29. PROMETHAZINE [Concomitant]
     Active Substance: PROMETHAZINE\PROMETHAZINE HYDROCHLORIDE
     Indication: VOMITING
     Dosage: TAKEN FOUR TIMES DAILY AS NEEDED
     Route: 054
  30. VANCOMYCIN [Concomitant]
     Active Substance: VANCOMYCIN
     Route: 048
  31. VENLAFAXINE [Concomitant]
     Active Substance: VENLAFAXINE HYDROCHLORIDE
     Route: 048
  32. FUROSEMIDE. [Concomitant]
     Active Substance: FUROSEMIDE
     Route: 048
  33. GABAPENTIN. [Concomitant]
     Active Substance: GABAPENTIN
     Dosage: 2 TABLETS 3 TIMES DAILY
     Route: 048
  34. MAGNESIUM HYDROXIDE. [Concomitant]
     Active Substance: MAGNESIUM HYDROXIDE
     Dosage: 400 MG/ 5ML ORAL SUSPENSION.?TAKEN AS NEEDED
     Route: 065
  35. EXEMESTANE. [Suspect]
     Active Substance: EXEMESTANE
     Indication: PRODUCT USED FOR UNKNOWN INDICATION
     Route: 065
     Dates: start: 201407, end: 201408
  36. EXEMESTANE. [Suspect]
     Active Substance: EXEMESTANE
     Route: 065
     Dates: start: 201504
  37. FULVESTRANT [Suspect]
     Active Substance: FULVESTRANT
     Indication: PRODUCT USED FOR UNKNOWN INDICATION
     Route: 065
     Dates: start: 201408, end: 201409
  38. PROMETHAZINE [Concomitant]
     Active Substance: PROMETHAZINE\PROMETHAZINE HYDROCHLORIDE
     Indication: NAUSEA
     Route: 048

REACTIONS (3)
  - Clostridium difficile colitis [Recovering/Resolving]
  - Urinary incontinence [Unknown]
  - Visual acuity reduced [Unknown]
